FAERS Safety Report 8380990-5 (Version None)
Quarter: 2012Q2

REPORT INFORMATION
  Report Type: 
  Country: None (occurrence: None)
  Receive Date: 20120523
  Receipt Date: 20120521
  Transmission Date: 20120825
  Serious: Yes (Other)
  Sender: FDA-Public Use
  Company Number: US-BAYER-2012-050788

PATIENT
  Age: 71 Year
  Sex: Male

DRUGS (6)
  1. METOPROLOL [Concomitant]
  2. LEVITRA [Suspect]
     Indication: ERECTILE DYSFUNCTION
     Dosage: 20 MG ORALLY
     Route: 048
  3. TAMSULOSIN HCL [Concomitant]
  4. SIMVASTATIN [Concomitant]
  5. PRASUGREL [Concomitant]
  6. METFORMIN HCL [Concomitant]

REACTIONS (1)
  - DEAFNESS UNILATERAL [None]
